FAERS Safety Report 5423862-8 (Version None)
Quarter: 2007Q3

REPORT INFORMATION
  Report Type: 
  Country: None (occurrence: None)
  Receive Date: 20070823
  Receipt Date: 20070814
  Transmission Date: 20080115
  Serious: Yes (Other)
  Sender: FDA-Public Use
  Company Number: US-ROCHE-511532

PATIENT
  Sex: Female

DRUGS (4)
  1. BONIVA [Suspect]
     Indication: OSTEOPOROSIS
     Route: 065
     Dates: start: 20070419, end: 20070619
  2. CALCIUM NOS [Concomitant]
  3. TRAMADOL HCL [Concomitant]
  4. MULTIVITAMIN NOS [Concomitant]

REACTIONS (1)
  - ANAEMIA [None]
